FAERS Safety Report 16187696 (Version 1)
Quarter: 2019Q2

REPORT INFORMATION
  Report Type: Spontaneous
  Country: IN (occurrence: IN)
  Receive Date: 20190412
  Receipt Date: 20190412
  Transmission Date: 20190711
  Serious: Yes (Other)
  Sender: FDA-Public Use
  Company Number: IN-AMGEN-INDSP2019055087

PATIENT
  Age: 33 Year
  Sex: Male

DRUGS (1)
  1. XGEVA [Suspect]
     Active Substance: DENOSUMAB
     Indication: BONE GIANT CELL TUMOUR
     Dosage: UNK, 4 DOSAGE IN ONE MONTH
     Route: 065

REACTIONS (2)
  - Metastases to lung [Not Recovered/Not Resolved]
  - Gait disturbance [Unknown]
